FAERS Safety Report 17591477 (Version 1)
Quarter: 2020Q1

REPORT INFORMATION
  Report Type: Spontaneous
  Country: HR (occurrence: HR)
  Receive Date: 20200327
  Receipt Date: 20200327
  Transmission Date: 20200409
  Serious: Yes (Other)
  Sender: FDA-Public Use
  Company Number: HR-ASTRAZENECA-2020SE42653

PATIENT
  Sex: Female

DRUGS (8)
  1. CONCOR COR [Suspect]
     Active Substance: BISOPROLOL FUMARATE
     Route: 048
     Dates: start: 20191124, end: 20191124
  2. KVENTIAX [Suspect]
     Active Substance: QUETIAPINE FUMARATE
     Route: 048
     Dates: start: 20191124, end: 20191124
  3. ACIPAN [Suspect]
     Active Substance: PANTOPRAZOLE SODIUM
     Route: 048
     Dates: start: 20191124, end: 20191124
  4. CERSON [Suspect]
     Active Substance: NITRAZEPAM
     Route: 048
     Dates: start: 20191124, end: 20191124
  5. DIAPREL MR [Suspect]
     Active Substance: GLICLAZIDE
     Route: 048
     Dates: start: 20191124, end: 20191124
  6. GLICLADA [Suspect]
     Active Substance: GLICLAZIDE
     Route: 048
     Dates: start: 20191124, end: 20191124
  7. DIAZEPAM. [Suspect]
     Active Substance: DIAZEPAM
     Route: 048
     Dates: start: 20191124, end: 20191124
  8. TEGRETOL [Suspect]
     Active Substance: CARBAMAZEPINE
     Route: 048
     Dates: start: 20191124, end: 20191124

REACTIONS (5)
  - Suicide attempt [Unknown]
  - Intentional overdose [Unknown]
  - Blood glucose increased [Unknown]
  - Somnolence [Unknown]
  - Vomiting [Unknown]
